FAERS Safety Report 6207162-4 (Version None)
Quarter: 2009Q2

REPORT INFORMATION
  Report Type: 
  Country: None (occurrence: None)
  Receive Date: 20090528
  Receipt Date: 20081128
  Transmission Date: 20091009
  Serious: Yes (Other)
  Sender: FDA-Public Use
  Company Number: FR-PFIZER INC-2008101407

PATIENT
  Sex: Female

DRUGS (6)
  1. SOLU-MEDROL [Suspect]
     Route: 042
     Dates: start: 20080918
  2. TRASTUZUMAB [Suspect]
     Route: 042
     Dates: start: 20080918
  3. ONDANSETRON HCL [Suspect]
     Route: 042
     Dates: start: 20080918
  4. TAXOTERE [Suspect]
     Route: 042
     Dates: start: 20080918, end: 20080918
  5. TENSTATEN [Concomitant]
  6. NICARDIPINE HCL [Concomitant]

REACTIONS (5)
  - BLISTER [None]
  - ERYTHEMA [None]
  - MYALGIA [None]
  - PAIN IN EXTREMITY [None]
  - SKIN EXFOLIATION [None]
